FAERS Safety Report 9759647 (Version 2)
Quarter: 2013Q4

REPORT INFORMATION
  Report Type: Spontaneous
  Country: US (occurrence: US)
  Receive Date: 20131216
  Receipt Date: 20131216
  Transmission Date: 20140711
  Serious: No
  Sender: FDA-Public Use
  Company Number: US-GILEAD-2010-0028085

PATIENT
  Sex: Female
  Weight: 47.17 kg

DRUGS (16)
  1. LETAIRIS [Suspect]
     Indication: PULMONARY ARTERIAL HYPERTENSION
     Route: 048
     Dates: start: 20100312
  2. FLOLAN [Concomitant]
  3. OXYGEN [Concomitant]
  4. ALDACTONE [Concomitant]
  5. LASIX [Concomitant]
  6. METOPROLOL [Concomitant]
  7. LANOXIN [Concomitant]
  8. KEFLEX [Concomitant]
  9. PRILOSEC [Concomitant]
  10. IMODIUM [Concomitant]
  11. CALCIUM [Concomitant]
  12. IRON [Concomitant]
  13. CALCIUM CITRATE [Concomitant]
  14. MULTIVITAMIN [Concomitant]
  15. FERROUS SULFATE [Concomitant]
  16. STERILE DILUENT [Concomitant]

REACTIONS (3)
  - Heart rate increased [Unknown]
  - Dyspnoea [Unknown]
  - Fluid retention [Unknown]
